FAERS Safety Report 9653885 (Version 1)
Quarter: 2013Q4

REPORT INFORMATION
  Report Type: Spontaneous
  Country: US (occurrence: US)
  Receive Date: 20131029
  Receipt Date: 20131029
  Transmission Date: 20140711
  Serious: No
  Sender: FDA-Public Use
  Company Number: US-BIOGENIDEC-2013BI081567

PATIENT
  Age: 43 Year
  Sex: Female

DRUGS (7)
  1. TECFIDERA [Suspect]
     Indication: MULTIPLE SCLEROSIS
     Route: 048
     Dates: start: 20130813, end: 20130820
  2. TECFIDERA [Suspect]
     Indication: MULTIPLE SCLEROSIS
     Route: 048
  3. ENJUVIA [Concomitant]
  4. CELEBREX [Concomitant]
  5. EFFEXOR [Concomitant]
  6. MELOXICAM [Concomitant]
  7. ZOLPIDEM [Concomitant]

REACTIONS (11)
  - Insomnia [Unknown]
  - Fatigue [Not Recovered/Not Resolved]
  - Cystitis [Not Recovered/Not Resolved]
  - Headache [Unknown]
  - General symptom [Unknown]
  - Dizziness [Unknown]
  - Erythema [Unknown]
  - Flushing [Not Recovered/Not Resolved]
  - Nausea [Not Recovered/Not Resolved]
  - Burning sensation [Unknown]
  - Abdominal pain [Not Recovered/Not Resolved]
